FAERS Safety Report 12206574 (Version 2)
Quarter: 2016Q1

REPORT INFORMATION
  Report Type: Report from Study
  Country: FR (occurrence: FR)
  Receive Date: 20160324
  Receipt Date: 20160329
  Transmission Date: 20160526
  Serious: Yes (Other)
  Sender: FDA-Public Use
  Company Number: FR-UCBSA-2016010769

PATIENT
  Age: 21 Year
  Sex: Female

DRUGS (2)
  1. LEVETIRACETAM. [Suspect]
     Active Substance: LEVETIRACETAM
     Dosage: INCREASED TO 1000MG /DAY IN THIRD TRIMESTER
  2. LEVETIRACETAM. [Suspect]
     Active Substance: LEVETIRACETAM
     Indication: EPILEPSY
     Dosage: 750 MG/DAY

REACTIONS (5)
  - Premature rupture of membranes [Unknown]
  - Threatened labour [Unknown]
  - Breast feeding [Unknown]
  - Myoclonus [Unknown]
  - Pregnancy [Unknown]
